FAERS Safety Report 19584082 (Version 1)
Quarter: 2021Q3

REPORT INFORMATION
  Report Type: Spontaneous
  Country: ES (occurrence: ES)
  Receive Date: 20210720
  Receipt Date: 20210720
  Transmission Date: 20211014
  Serious: Yes (Death, Hospitalization, Other)
  Sender: FDA-Public Use
  Company Number: ES-MYLANLABS-2021M1042635

PATIENT
  Age: 48 Year
  Sex: Male

DRUGS (3)
  1. MEGLUMINE ANTIMONATE [Suspect]
     Active Substance: MEGLUMINE ANTIMONIATE
     Indication: VISCERAL LEISHMANIASIS
     Dosage: 10 MILLIGRAM/KILOGRAM, QD
     Route: 042
  2. PREDNISONE. [Suspect]
     Active Substance: PREDNISONE
     Indication: CHRONIC OBSTRUCTIVE PULMONARY DISEASE
     Dosage: 30 MILLIGRAM, QD
     Route: 048
  3. PREDNISONE. [Suspect]
     Active Substance: PREDNISONE
     Indication: BRONCHIAL HYPERREACTIVITY

REACTIONS (20)
  - Tachycardia [Fatal]
  - Jarisch-Herxheimer reaction [Fatal]
  - Shock [Fatal]
  - Pallor [Fatal]
  - Colitis [Fatal]
  - Asthenia [Fatal]
  - Abdominal distension [Fatal]
  - Sinus tachycardia [Fatal]
  - Hypotension [Fatal]
  - Leukopenia [Fatal]
  - Diverticulum [Fatal]
  - Abdominal pain upper [Fatal]
  - Renal impairment [Fatal]
  - Multiple organ dysfunction syndrome [Fatal]
  - Decreased appetite [Fatal]
  - Pyrexia [Fatal]
  - Visceral leishmaniasis [Fatal]
  - Thrombocytopenia [Fatal]
  - Mucosal discolouration [Fatal]
  - Polyuria [Fatal]

NARRATIVE: CASE EVENT DATE: 20030908
